FAERS Safety Report 9482097 (Version 3)
Quarter: 2013Q3

REPORT INFORMATION
  Report Type: Report from Study
  Country: IT (occurrence: IT)
  Receive Date: 20130828
  Receipt Date: 20130904
  Transmission Date: 20140515
  Serious: Yes (Hospitalization)
  Sender: FDA-Public Use
  Company Number: PHHO2013IT010099

PATIENT
  Age: 76 Year
  Sex: Female
  Weight: 97 kg

DRUGS (4)
  1. AFINITOR [Suspect]
     Indication: BREAST CANCER METASTATIC
     Dosage: 10 MG, QD
     Route: 048
     Dates: start: 20130612, end: 20130627
  2. EXEMESTANE [Suspect]
     Indication: BREAST CANCER METASTATIC
     Dosage: 25 MG, QD
     Route: 048
     Dates: start: 20130712, end: 20130728
  3. LANSOPRAZOLE [Concomitant]
     Indication: ANTACID THERAPY
     Dosage: 15 MG, UNK
     Route: 048
     Dates: start: 20130728
  4. COMBISARTAN [Concomitant]
     Indication: HYPERTENSION
     Dosage: 12.5 MG, UNK
     Route: 048

REACTIONS (2)
  - Infection [Recovered/Resolved with Sequelae]
  - Diarrhoea [Recovered/Resolved]
